FAERS Safety Report 7266575-2 (Version None)
Quarter: 2011Q1

REPORT INFORMATION
  Report Type: 
  Country: None (occurrence: None)
  Receive Date: 20110131
  Receipt Date: 20110119
  Transmission Date: 20110831
  Serious: Yes (Hospitalization, Other)
  Sender: FDA-Public Use
  Company Number: JP-B.I. PHARMACEUTICALS,INC./RIDGEFIELD-2011-DE-00056GD

PATIENT
  Age: 55 Year
  Sex: Female

DRUGS (5)
  1. ANTIBIOTIC PREPARATIONS [Suspect]
     Route: 065
  2. PERMAX [Suspect]
     Indication: PARKINSON'S DISEASE
     Dosage: 750 MCG
     Route: 048
     Dates: end: 20071115
  3. BI-SIFROL TABLETS [Suspect]
     Indication: PARKINSON'S DISEASE
     Dosage: 3 MG
     Route: 048
     Dates: end: 20080129
  4. SYMMETREL [Suspect]
     Indication: PARKINSON'S DISEASE
     Dosage: 250 MG
     Route: 048
     Dates: end: 20080129
  5. MENESIT [Suspect]
     Indication: PARKINSON'S DISEASE
     Dosage: 850 MG
     Route: 048

REACTIONS (7)
  - RETROPERITONEAL FIBROSIS [None]
  - DRUG EFFECT DECREASED [None]
  - PNEUMONIA [None]
  - URETERIC OBSTRUCTION [None]
  - ACUTE RESPIRATORY DISTRESS SYNDROME [None]
  - APHAGIA [None]
  - HYDRONEPHROSIS [None]
